FAERS Safety Report 21475587 (Version 1)
Quarter: 2022Q4

REPORT INFORMATION
  Report Type: Spontaneous
  Country: FR (occurrence: FR)
  Receive Date: 20221019
  Receipt Date: 20221019
  Transmission Date: 20230113
  Serious: Yes (Hospitalization, Other)
  Sender: FDA-Public Use
  Company Number: None

PATIENT
  Age: 29 Year
  Sex: Female

DRUGS (6)
  1. MORPHINE SULFATE [Suspect]
     Active Substance: MORPHINE SULFATE
     Indication: Drug dependence
     Dosage: 800 MG, QD
     Route: 042
     Dates: start: 2017
  2. METHADONE HYDROCHLORIDE [Suspect]
     Active Substance: METHADONE HYDROCHLORIDE
     Indication: Drug dependence
     Dosage: UNK
  3. DIAZEPAM [Suspect]
     Active Substance: DIAZEPAM
     Indication: Drug dependence
     Dosage: 10/J
  4. ZOLPIDEM TARTRATE [Suspect]
     Active Substance: ZOLPIDEM TARTRATE
     Indication: Drug dependence
     Dosage: FROM 7 TO 12 /24H
  5. KETAMINE [Suspect]
     Active Substance: KETAMINE
     Indication: Drug dependence
     Dosage: UNK
     Route: 042
  6. COCAINE [Suspect]
     Active Substance: COCAINE
     Indication: Drug dependence
     Dosage: UNK
     Route: 042

REACTIONS (1)
  - Drug dependence [Not Recovered/Not Resolved]
